FAERS Safety Report 18900052 (Version 1)
Quarter: 2021Q1

REPORT INFORMATION
  Report Type: Spontaneous
  Country: US (occurrence: US)
  Receive Date: 20210216
  Receipt Date: 20210216
  Transmission Date: 20210420
  Serious: Yes (Other)
  Sender: FDA-Public Use
  Company Number: NVSC2021US033833

PATIENT
  Age: 52 Year
  Sex: Female

DRUGS (11)
  1. VASOPRESSIN. [Suspect]
     Active Substance: VASOPRESSIN
     Indication: CARDIOGENIC SHOCK
     Dosage: UNK
     Route: 041
  2. MITOMYCIN. [Concomitant]
     Active Substance: MITOMYCIN
     Indication: GENERAL ANAESTHESIA
     Dosage: UNK
     Route: 065
  3. DOXORUBICIN [Concomitant]
     Active Substance: DOXORUBICIN
     Indication: GENERAL ANAESTHESIA
     Dosage: UNK
     Route: 065
  4. OCTREOTIDE. [Suspect]
     Active Substance: OCTREOTIDE
     Dosage: 300 UG, QH
     Route: 041
  5. OCTREOTIDE. [Suspect]
     Active Substance: OCTREOTIDE
     Dosage: 500 UG
     Route: 040
  6. OCTREOTIDE. [Suspect]
     Active Substance: OCTREOTIDE
     Dosage: 150 UG, QH
     Route: 065
  7. DOBUTAMINE [Suspect]
     Active Substance: DOBUTAMINE HYDROCHLORIDE
     Indication: CARDIOGENIC SHOCK
     Dosage: UNK
     Route: 041
  8. OCTREOTIDE. [Suspect]
     Active Substance: OCTREOTIDE
     Indication: CARCINOID SYNDROME
     Dosage: ESCALATED TO 60 MG/MONTH
     Route: 065
  9. OCTREOTIDE. [Suspect]
     Active Substance: OCTREOTIDE
     Dosage: 150 UG, TID
     Route: 058
  10. OCTREOTIDE. [Suspect]
     Active Substance: OCTREOTIDE
     Dosage: 150 UG, QH
     Route: 041
  11. OCTREOTIDE. [Suspect]
     Active Substance: OCTREOTIDE
     Dosage: 50 UG, QH
     Route: 041

REACTIONS (2)
  - Cardiogenic shock [Recovered/Resolved]
  - Condition aggravated [Recovered/Resolved]
